FAERS Safety Report 14714245 (Version 1)
Quarter: 2018Q2

REPORT INFORMATION
  Report Type: Spontaneous
  Country: FR (occurrence: FR)
  Receive Date: 20180404
  Receipt Date: 20180404
  Transmission Date: 20180711
  Serious: Yes (Other)
  Sender: FDA-Public Use
  Company Number: FR-GLAXOSMITHKLINE-FR2018052539

PATIENT
  Age: 66 Year
  Sex: Female

DRUGS (2)
  1. MODOPAR LP [Suspect]
     Active Substance: BENSERAZIDE HYDROCHLORIDE\LEVODOPA
     Indication: PARKINSON^S DISEASE
     Dosage: 125 MG, UNK
     Route: 048
  2. REQUIP LP [Suspect]
     Active Substance: ROPINIROLE HYDROCHLORIDE
     Indication: PARKINSON^S DISEASE
     Dosage: UNK
     Route: 048

REACTIONS (4)
  - Hallucination, visual [Recovered/Resolved]
  - Aggression [Recovered/Resolved]
  - Abnormal behaviour [Recovered/Resolved]
  - Dependence [Recovered/Resolved]

NARRATIVE: CASE EVENT DATE: 2016
